FAERS Safety Report 14604752 (Version 1)
Quarter: 2018Q1

REPORT INFORMATION
  Report Type: Spontaneous
  Country: US (occurrence: US)
  Receive Date: 20180306
  Receipt Date: 20180306
  Transmission Date: 20180509
  Serious: Yes (Other)
  Sender: FDA-Public Use
  Company Number: US-THE PROACTIV LLC-2043068

PATIENT
  Age: 20 Year
  Sex: Male

DRUGS (4)
  1. CETAPHIL DERMACONTROL SPF 30 [Concomitant]
     Active Substance: AVOBENZONE\OCTISALATE\OCTOCRYLENE
     Route: 061
     Dates: start: 20180211, end: 20180212
  2. PROACTIV MD DEEP CLEANSING FACE WASH [Suspect]
     Active Substance: COSMETICS
     Route: 061
     Dates: start: 20180211, end: 20180212
  3. PROACTIV SOLUTION DEEP CLEANSING WASH [Suspect]
     Active Substance: SALICYLIC ACID
     Indication: ACNE PUSTULAR
     Route: 061
     Dates: start: 20180211, end: 20180212
  4. ADAPALENE. [Concomitant]
     Active Substance: ADAPALENE
     Route: 061
     Dates: start: 20180211, end: 20180212

REACTIONS (4)
  - Swelling face [Recovered/Resolved]
  - Urticaria [Recovered/Resolved]
  - Hypersensitivity [Recovered/Resolved]
  - Swelling [Recovered/Resolved]

NARRATIVE: CASE EVENT DATE: 20180212
